FAERS Safety Report 5982415-3 (Version None)
Quarter: 2008Q4

REPORT INFORMATION
  Report Type: 
  Country: None (occurrence: None)
  Receive Date: 20081208
  Receipt Date: 20081120
  Transmission Date: 20090506
  Serious: Yes (Other)
  Sender: FDA-Public Use
  Company Number: PHHY2008FI28946

PATIENT
  Age: 80 Year
  Sex: Male

DRUGS (9)
  1. EXELON [Suspect]
     Indication: MEMORY IMPAIRMENT
     Dosage: 1.5 MG, BID
     Dates: start: 20081105, end: 20081123
  2. ORMOX [Concomitant]
     Dosage: 10MG PER DAY
  3. LIPITOR [Concomitant]
     Dosage: 40MG PER DAY
  4. CASODEX [Concomitant]
     Dosage: 50MG PER DAY
  5. SPESICOR DOS [Concomitant]
     Dosage: 47.5 MG PER DAY
  6. STALEVO 100 [Concomitant]
     Dosage: 150MG/37.5MG/200MG,
  7. STALEVO 100 [Concomitant]
     Dosage: UNK
  8. MAREVAN FORTE [Concomitant]
     Dosage: 5 MG
  9. DUREKAL [Concomitant]
     Dosage: EVERY SECOND DAY

REACTIONS (3)
  - BLOOD PRESSURE DECREASED [None]
  - CARDIAC DISORDER [None]
  - DIZZINESS [None]
